FAERS Safety Report 5502695-8 (Version None)
Quarter: 2007Q4

REPORT INFORMATION
  Report Type: 
  Country: None (occurrence: None)
  Receive Date: 20071031
  Receipt Date: 20071024
  Transmission Date: 20080405
  Serious: No
  Sender: FDA-Public Use
  Company Number: FR-ELI_LILLY_AND_COMPANY-FR200710006200

PATIENT
  Age: 53 Year
  Sex: Male

DRUGS (7)
  1. ZYPREXA [Suspect]
     Indication: DELIRIUM
     Dosage: 20 MG, DAILY (1/D)
     Route: 048
     Dates: start: 20050101
  2. ZYPREXA [Suspect]
     Dosage: 10 MG, DAILY (1/D)
     Route: 048
     Dates: start: 20061001
  3. DEPAKOTE [Concomitant]
     Indication: EPILEPSY
     Dosage: 2500 MG, DAILY (1/D)
  4. GARDAN TAB [Concomitant]
     Indication: EPILEPSY
     Dosage: 200 MG, DAILY (1/D)
  5. LAMICTAL [Concomitant]
     Indication: EPILEPSY
  6. ATARAX [Concomitant]
     Indication: EPILEPSY
     Dosage: 200 MG, DAILY (1/D)
     Route: 048
  7. XATRAL LP [Concomitant]

REACTIONS (1)
  - NEUTROPENIA [None]
